FAERS Safety Report 6382026-4 (Version None)
Quarter: 2009Q3

REPORT INFORMATION
  Report Type: 
  Country: None (occurrence: None)
  Receive Date: 20090925
  Receipt Date: 20090914
  Transmission Date: 20100115
  Serious: Yes (Hospitalization)
  Sender: FDA-Public Use
  Company Number: 1-19730802

PATIENT
  Age: 61 Year
  Sex: Male
  Weight: 104.7809 kg

DRUGS (8)
  1. BACTRIM [Suspect]
     Indication: BRONCHITIS
     Dosage: 3 TIMES DAILY, ORAL
     Route: 048
     Dates: start: 20040101, end: 20040101
  2. BACTRIM [Suspect]
     Indication: SINUS DISORDER
     Dosage: 3 TIMES DAILY, ORAL
     Route: 048
     Dates: start: 20040101, end: 20040101
  3. BACTRIM [Suspect]
     Indication: STAPHYLOCOCCAL INFECTION
     Dosage: 3 TIMES DAILY, ORAL
     Route: 048
     Dates: start: 20040101, end: 20040101
  4. LUPRON (LEUPROLIDE ACETATE INJECTION) [Concomitant]
  5. VERAPAMIL [Concomitant]
  6. DOXAZOSIN MESYLATE [Concomitant]
  7. TRAZODONE [Concomitant]
  8. HYDROCODONE [Concomitant]

REACTIONS (5)
  - COLONIC POLYP [None]
  - DRUG HYPERSENSITIVITY [None]
  - RECTAL HAEMORRHAGE [None]
  - SLEEP DISORDER [None]
  - TOXIC EPIDERMAL NECROLYSIS [None]
